FAERS Safety Report 9481680 (Version 2)
Quarter: 2013Q3

REPORT INFORMATION
  Report Type: Spontaneous
  Country: CA (occurrence: CA)
  Receive Date: 20130828
  Receipt Date: 20130828
  Transmission Date: 20140515
  Serious: Yes (Hospitalization)
  Sender: FDA-Public Use
  Company Number: CA-AMGEN-KDL198676

PATIENT
  Age: 56 Year
  Sex: Female

DRUGS (5)
  1. ENBREL [Suspect]
     Indication: RHEUMATOID ARTHRITIS
     Dosage: 50 MG, QWK
     Route: 058
     Dates: start: 20060905
  2. HYDROXYCHLOROQUINE SULFATE [Concomitant]
     Dosage: 200 MG, QD
  3. FOLIC ACID [Concomitant]
     Dosage: 5 MG, 2 TIMES/WK
  4. METHOTREXATE [Concomitant]
     Dosage: 2.5 MG, QWK
  5. CELECOXIB [Concomitant]
     Dosage: 500 MG, QD

REACTIONS (6)
  - Colectomy [Unknown]
  - Postoperative wound infection [Unknown]
  - Influenza [Unknown]
  - Abdominal wall abscess [Unknown]
  - Serositis [Unknown]
  - Sinusitis [Unknown]
